FAERS Safety Report 10608460 (Version 1)
Quarter: 2014Q4

REPORT INFORMATION
  Report Type: Spontaneous
  Country: GB (occurrence: GB)
  Receive Date: 20141125
  Receipt Date: 20141125
  Transmission Date: 20150529
  Serious: Yes (Other)
  Sender: FDA-Public Use
  Company Number: GB-TEVA-523406ISR

PATIENT
  Age: 72 Year
  Sex: Female
  Weight: 60.32 kg

DRUGS (1)
  1. NITROFURANTOIN. [Suspect]
     Active Substance: NITROFURANTOIN
     Indication: URINARY TRACT INFECTION
     Dosage: AT NIGHT
     Route: 048

REACTIONS (2)
  - Autoimmune pancreatitis [Recovered/Resolved with Sequelae]
  - Jaundice [Unknown]
